FAERS Safety Report 8027244-4 (Version None)
Quarter: 2012Q1

REPORT INFORMATION
  Report Type: 
  Country: None (occurrence: None)
  Receive Date: 20120106
  Receipt Date: 20120102
  Transmission Date: 20120608
  Serious: Yes (Hospitalization)
  Sender: FDA-Public Use
  Company Number: US-VERTEX PHARMACEUTICALS INC.-AE-2012-000228

PATIENT
  Sex: Female

DRUGS (3)
  1. RIBASPHERE [Concomitant]
     Indication: HEPATITIS C
     Route: 048
     Dates: start: 20111208
  2. INCIVEK [Suspect]
     Indication: HEPATITIS C
     Route: 048
     Dates: start: 20111208
  3. PEG-INTRON [Concomitant]
     Indication: HEPATITIS C
     Route: 058
     Dates: start: 20111208

REACTIONS (3)
  - STREPTOCOCCAL INFECTION [None]
  - DEHYDRATION [None]
  - ANAEMIA [None]
